FAERS Safety Report 10654619 (Version 1)
Quarter: 2014Q4

REPORT INFORMATION
  Report Type: Spontaneous
  Country: US (occurrence: US)
  Receive Date: 20141216
  Receipt Date: 20141216
  Transmission Date: 20150529
  Serious: No
  Sender: FDA-Public Use
  Company Number: US-PFIZER INC-2014340053

PATIENT
  Age: 9 Year
  Sex: Female
  Weight: 34 kg

DRUGS (1)
  1. JUNIOR STRENGTH ADVIL [Suspect]
     Active Substance: IBUPROFEN
     Indication: NASOPHARYNGITIS
     Dosage: 200 MG, UNK
     Route: 048

REACTIONS (5)
  - Blister [Unknown]
  - Pharyngeal oedema [Unknown]
  - Urticaria [Not Recovered/Not Resolved]
  - Erythema [Unknown]
  - Rash [Unknown]

NARRATIVE: CASE EVENT DATE: 20141206
